FAERS Safety Report 9329535 (Version 1)
Quarter: 2013Q2

REPORT INFORMATION
  Report Type: Spontaneous
  Country: US (occurrence: US)
  Receive Date: 20130604
  Receipt Date: 20130604
  Transmission Date: 20140414
  Serious: No
  Sender: FDA-Public Use
  Company Number: US-SANOFI-AVENTIS-2012SA095513

PATIENT
  Age: 61 Year
  Sex: Male

DRUGS (4)
  1. LANTUS SOLOSTAR [Suspect]
     Dosage: DOSE:27 UNIT(S)
  2. LANTUS SOLOSTAR [Suspect]
     Dosage: DOSE:13 UNIT(S)
  3. LANTUS SOLOSTAR [Suspect]
     Dosage: DOSE:14 UNIT(S)
  4. SOLOSTAR [Suspect]

REACTIONS (1)
  - Sciatica [Unknown]
